FAERS Safety Report 4907918-1 (Version None)
Quarter: 2006Q1

REPORT INFORMATION
  Report Type: 
  Country: None (occurrence: None)
  Receive Date: 20060208
  Receipt Date: 20060201
  Transmission Date: 20060701
  Serious: Yes (Other)
  Sender: FDA-Public Use
  Company Number: 200610160BYL

PATIENT
  Age: 62 Year
  Sex: Female

DRUGS (1)
  1. ADALAT [Suspect]
     Dosage: 10 MG QD ORAL
     Route: 048
     Dates: start: 20040201

REACTIONS (3)
  - LEUKOPENIA [None]
  - RENAL FAILURE [None]
  - THROMBOCYTOPENIA [None]
